FAERS Safety Report 9460235 (Version 1)
Quarter: 2013Q3

REPORT INFORMATION
  Report Type: Spontaneous
  Country: US (occurrence: US)
  Receive Date: 20130815
  Receipt Date: 20130815
  Transmission Date: 20140515
  Serious: Yes (Other)
  Sender: FDA-Public Use
  Company Number: US-TEVA-426458USA

PATIENT
  Age: 29 Year
  Sex: Female
  Weight: 58.57 kg

DRUGS (1)
  1. PARAGARD 380A [Suspect]
     Indication: CONTRACEPTION
     Route: 015
     Dates: start: 20130607, end: 20130719

REACTIONS (4)
  - Device dislocation [Recovered/Resolved]
  - Pelvic discomfort [Unknown]
  - Menorrhagia [Recovered/Resolved]
  - Amenorrhoea [Not Recovered/Not Resolved]
